FAERS Safety Report 10192550 (Version 3)
Quarter: 2014Q3

REPORT INFORMATION
  Report Type: Spontaneous
  Country: JP (occurrence: JP)
  Receive Date: 20140523
  Receipt Date: 20140729
  Transmission Date: 20150326
  Serious: Yes (Other)
  Sender: FDA-Public Use
  Company Number: JP-ASTELLAS-2014JP007302

PATIENT
  Age: 85 Year
  Sex: Female
  Weight: 44 kg

DRUGS (29)
  1. BLADDERON [Suspect]
     Active Substance: FLAVOXATE
     Route: 048
     Dates: start: 20140218, end: 20140428
  2. CONSTAN                            /00384601/ [Concomitant]
     Indication: INSOMNIA
     Dosage: 0.4 MG, ONCE DAILY
     Route: 048
     Dates: start: 20131105
  3. KAKKONTO [Concomitant]
     Active Substance: HERBALS
     Route: 048
     Dates: start: 20140218, end: 20140225
  4. ZINC OXIDE. [Concomitant]
     Active Substance: ZINC OXIDE
     Indication: PRODUCT USED FOR UNKNOWN INDICATION
     Dosage: UNK UNK, UNKNOWN FREQ.
     Route: 065
  5. PEKIRON [Concomitant]
     Indication: PRODUCT USED FOR UNKNOWN INDICATION
     Dosage: UNK UNK, UNKNOWN FREQ.
     Route: 065
  6. BETANIS [Suspect]
     Active Substance: MIRABEGRON
     Indication: HYPERTONIC BLADDER
     Route: 048
     Dates: start: 20130810, end: 20131010
  7. BLADDERON [Suspect]
     Active Substance: FLAVOXATE
     Indication: HYPERTONIC BLADDER
     Route: 048
     Dates: start: 20120616
  8. CLARITIN [Concomitant]
     Active Substance: LORATADINE
     Indication: PRODUCT USED FOR UNKNOWN INDICATION
     Route: 065
  9. RIZE                               /00624801/ [Concomitant]
     Active Substance: CLOTIAZEPAM
     Indication: PRODUCT USED FOR UNKNOWN INDICATION
     Route: 065
  10. VESICARE [Suspect]
     Active Substance: SOLIFENACIN SUCCINATE
     Indication: PRODUCT USED FOR UNKNOWN INDICATION
  11. BIOFERMIN                          /01617201/ [Concomitant]
     Active Substance: BACILLUS SUBTILIS\LACTOBACILLUS ACIDOPHILUS\STREPTOCOCCUS FAECAIS
     Indication: ABDOMINAL DISTENSION
     Dosage: 1.0 G, THRICE DAILY
     Route: 048
     Dates: start: 20111209
  12. KIKYOTO [Concomitant]
     Indication: SALIVARY GLAND NEOPLASM
     Route: 048
     Dates: start: 20111213, end: 20140428
  13. HIRUDOID                           /00723701/ [Concomitant]
     Indication: PRODUCT USED FOR UNKNOWN INDICATION
     Dosage: UNK UNK, UNKNOWN FREQ.
     Route: 065
  14. BETANIS [Suspect]
     Active Substance: MIRABEGRON
     Indication: PRODUCT USED FOR UNKNOWN INDICATION
  15. BLADDERON [Suspect]
     Active Substance: FLAVOXATE
     Route: 048
     Dates: start: 20130713
  16. EXFORGE [Concomitant]
     Active Substance: AMLODIPINE BESYLATE\VALSARTAN
     Indication: HYPERTENSION
     Route: 048
     Dates: start: 20120207
  17. KAKKONTO [Concomitant]
     Active Substance: HERBALS
     Indication: PERIARTHRITIS
     Route: 048
     Dates: start: 20130427, end: 20130927
  18. CELESTAMINE [Concomitant]
     Active Substance: BETAMETHASONE\DEXCHLORPHENIRAMINE MALEATE
     Indication: PRODUCT USED FOR UNKNOWN INDICATION
     Route: 065
  19. EURAX [Concomitant]
     Active Substance: CROTAMITON
     Indication: PRODUCT USED FOR UNKNOWN INDICATION
     Dosage: UNK UNK, UNKNOWN FREQ.
     Route: 065
  20. BETANIS [Suspect]
     Active Substance: MIRABEGRON
     Route: 048
     Dates: start: 20140304, end: 20140428
  21. BLADDERON [Suspect]
     Active Substance: FLAVOXATE
     Route: 048
     Dates: start: 20131213, end: 20140121
  22. PL [Concomitant]
     Active Substance: ACETAMINOPHEN\CAFFEINE\PROMETHAZINE\SALICYLAMIDE
     Indication: PRODUCT USED FOR UNKNOWN INDICATION
     Dosage: 1.0 G, THRICE DAILY
     Route: 065
  23. PEKIRON [Concomitant]
  24. VESICARE [Suspect]
     Active Substance: SOLIFENACIN SUCCINATE
     Indication: HYPERTONIC BLADDER
     Route: 048
     Dates: start: 20131130, end: 20140304
  25. BLADDERON [Suspect]
     Active Substance: FLAVOXATE
     Route: 048
     Dates: start: 20121225
  26. KAKKONTO [Concomitant]
     Active Substance: HERBALS
     Indication: NASOPHARYNGITIS
     Route: 048
     Dates: start: 20130108, end: 20130115
  27. HACHIMIJIOGAN [Concomitant]
     Active Substance: HERBALS
     Indication: SPINAL COLUMN STENOSIS
     Route: 048
     Dates: start: 20120313, end: 20140428
  28. ALBUMIN TANNATE [Concomitant]
     Active Substance: ALBUMIN BOVINE\TANNIC ACID
     Indication: PRODUCT USED FOR UNKNOWN INDICATION
     Dosage: 1.0 G, THRICE DAILY
     Route: 065
  29. FLOMOX                             /01418603/ [Concomitant]
     Indication: PRODUCT USED FOR UNKNOWN INDICATION
     Route: 065

REACTIONS (4)
  - Headache [Recovered/Resolved]
  - Malaise [Recovered/Resolved]
  - Hepatic function abnormal [Recovering/Resolving]
  - Decreased appetite [Recovered/Resolved]

NARRATIVE: CASE EVENT DATE: 20140201
